FAERS Safety Report 7078846-3 (Version None)
Quarter: 2010Q4

REPORT INFORMATION
  Report Type: 
  Country: None (occurrence: None)
  Receive Date: 20101102
  Receipt Date: 20101019
  Transmission Date: 20110411
  Serious: Yes (Other)
  Sender: FDA-Public Use
  Company Number: JP-SANOFI-AVENTIS-2010SA065939

PATIENT
  Sex: Male

DRUGS (2)
  1. MYSLEE [Suspect]
     Route: 048
  2. ALCOHOL [Concomitant]

REACTIONS (4)
  - AMNESIA [None]
  - DIZZINESS [None]
  - GAIT DISTURBANCE [None]
  - ROAD TRAFFIC ACCIDENT [None]
